FAERS Safety Report 20751686 (Version 14)
Quarter: 2024Q1

REPORT INFORMATION
  Report Type: Report from Study
  Country: HR (occurrence: HR)
  Receive Date: 20220426
  Receipt Date: 20240112
  Transmission Date: 20240410
  Serious: Yes (Hospitalization)
  Sender: FDA-Public Use
  Company Number: HR-NOVARTISPH-NVSC2022HR092275

PATIENT
  Age: 48 Year
  Sex: Male
  Weight: 93 kg

DRUGS (8)
  1. COSENTYX [Suspect]
     Active Substance: SECUKINUMAB
     Indication: Ankylosing spondylitis
     Dosage: 150 MG (LAST DOSE WAS SOMETIME FEB OR MAR 2022)
     Route: 058
     Dates: start: 202009, end: 202203
  2. COSENTYX [Suspect]
     Active Substance: SECUKINUMAB
     Indication: Axial spondyloarthritis
  3. SULFASALAZINE [Concomitant]
     Active Substance: SULFASALAZINE
     Indication: Ankylosing spondylitis
     Dosage: 500 MG, BID  (500 MG, 2X2 )
     Route: 048
  4. SULFASALAZINE [Concomitant]
     Active Substance: SULFASALAZINE
     Dosage: 500 MG, TID
     Route: 065
  5. BISOPROLOL FUMARATE [Concomitant]
     Active Substance: BISOPROLOL FUMARATE
     Indication: Atrial fibrillation
     Dosage: 5 MG, QD (1X1)
     Route: 048
  6. ELIQUIS [Concomitant]
     Active Substance: APIXABAN
     Indication: Atrial fibrillation
     Dosage: 5 MG, QD (2X1)
     Route: 048
  7. SULFASALAZINE [Concomitant]
     Active Substance: SULFASALAZINE
     Indication: Product used for unknown indication
     Dosage: UNK
     Route: 065
  8. EUTHYROX [Concomitant]
     Active Substance: LEVOTHYROXINE SODIUM
     Indication: Product used for unknown indication
     Dosage: 225 UG, QD
     Route: 065

REACTIONS (5)
  - Thyroid cancer [Not Recovered/Not Resolved]
  - Pain [Unknown]
  - Musculoskeletal stiffness [Unknown]
  - Arthralgia [Unknown]
  - Neck pain [Unknown]

NARRATIVE: CASE EVENT DATE: 20211201
